FAERS Safety Report 7138137-9 (Version None)
Quarter: 2010Q4

REPORT INFORMATION
  Report Type: 
  Country: None (occurrence: None)
  Receive Date: 20101103
  Receipt Date: 20100130
  Transmission Date: 20110411
  Serious: Yes (Life-Threatening)
  Sender: FDA-Public Use
  Company Number: US-WYE-H13287510

PATIENT
  Sex: Female

DRUGS (1)
  1. EFFEXOR XR [Suspect]
     Indication: DEPRESSION
     Dosage: DISCONTINUED OVER ONE TO TWO WEEKS, ORAL, 225 MG 1X PER 1 DAY, ORAL
     Route: 048
     Dates: start: 20091001, end: 20100101

REACTIONS (17)
  - AFFECT LABILITY [None]
  - ALVEOLAR OSTEITIS [None]
  - CHEST PAIN [None]
  - CRYING [None]
  - DEPRESSED MOOD [None]
  - DRUG INEFFECTIVE [None]
  - ENDODONTIC PROCEDURE [None]
  - FEELING ABNORMAL [None]
  - FEELING OF DESPAIR [None]
  - HEADACHE [None]
  - INSOMNIA [None]
  - MENTAL DISORDER [None]
  - MUSCLE TWITCHING [None]
  - PAIN [None]
  - PALPITATIONS [None]
  - SELF ESTEEM DECREASED [None]
  - SUICIDAL IDEATION [None]
